FAERS Safety Report 9911569 (Version 1)
Quarter: 2014Q1

REPORT INFORMATION
  Report Type: Report from Study
  Country: US (occurrence: US)
  Receive Date: 20140219
  Receipt Date: 20140219
  Transmission Date: 20141002
  Serious: Yes (Death)
  Sender: FDA-Public Use
  Company Number: PHEH2014US003216

PATIENT
  Sex: Female

DRUGS (10)
  1. TASIGNA [Suspect]
     Indication: CHRONIC MYELOID LEUKAEMIA
     Dosage: 150 MG, BID
     Route: 048
     Dates: start: 20100415
  2. LIPITOR [Concomitant]
  3. DILTIAZEM [Concomitant]
  4. NEXIUM//ESOMEPRAZOLE MAGNESIUM [Concomitant]
  5. CYMBALTA [Concomitant]
  6. SANCTURA [Concomitant]
  7. KLOR-CON [Concomitant]
  8. RAMIPRIL [Concomitant]
  9. LASIX [Concomitant]
  10. LYRICA [Concomitant]

REACTIONS (1)
  - Death [Fatal]
